FAERS Safety Report 8151245-9 (Version None)
Quarter: 2012Q1

REPORT INFORMATION
  Report Type: 
  Country: None (occurrence: None)
  Receive Date: 20120220
  Receipt Date: 20120215
  Transmission Date: 20120608
  Serious: Yes (Life-Threatening)
  Sender: FDA-Public Use
  Company Number: IT-ASTRAZENECA-2012SE10497

PATIENT
  Age: 12186 Day
  Sex: Male

DRUGS (4)
  1. SEROQUEL [Suspect]
     Route: 048
     Dates: start: 20120124, end: 20120124
  2. IMODIUM [Concomitant]
     Dosage: 2 MG HARD CAPS
  3. PRAMIPEXOLE DIHYDROCHLORIDE [Concomitant]
     Route: 048
  4. RISPERDAL [Suspect]
     Route: 048
     Dates: start: 20120124, end: 20120124

REACTIONS (1)
  - COMA [None]
